FAERS Safety Report 23711425 (Version 1)
Quarter: 2024Q2

REPORT INFORMATION
  Report Type: Spontaneous
  Country: US (occurrence: US)
  Receive Date: 20240405
  Receipt Date: 20240405
  Transmission Date: 20240716
  Serious: Yes (Other)
  Sender: FDA-Public Use
  Company Number: US-MYLANLABS-2024M1029059

PATIENT
  Age: 19 Year
  Sex: Female

DRUGS (3)
  1. TEMOZOLOMIDE [Suspect]
     Active Substance: TEMOZOLOMIDE
     Indication: Glioblastoma
     Dosage: UNK
     Route: 065
     Dates: start: 2021
  2. AZD-1390 [Suspect]
     Active Substance: AZD-1390
     Indication: Glioblastoma
     Dosage: UNK
     Route: 065
     Dates: start: 202005
  3. CEMIPLIMAB [Concomitant]
     Active Substance: CEMIPLIMAB
     Indication: Glioblastoma
     Dosage: UNK
     Route: 065

REACTIONS (2)
  - Drug ineffective [Unknown]
  - Disease progression [Unknown]

NARRATIVE: CASE EVENT DATE: 20210101
